FAERS Safety Report 6834655-9 (Version None)
Quarter: 2010Q3

REPORT INFORMATION
  Report Type: 
  Country: None (occurrence: None)
  Receive Date: 20100712
  Receipt Date: 20070604
  Transmission Date: 20110219
  Serious: No
  Sender: FDA-Public Use
  Company Number: US-PFIZER INC-2007030241

PATIENT
  Sex: Female
  Weight: 61.363 kg

DRUGS (4)
  1. CHANTIX [Suspect]
     Indication: SMOKING CESSATION THERAPY
     Dosage: EVERY DAY
     Dates: start: 20070101
  2. CELEBREX [Concomitant]
     Dosage: ONE PER DAY
  3. PREMPRO [Concomitant]
  4. ALL OTHER THERAPEUTIC PRODUCTS [Concomitant]
     Indication: HYPERTENSION

REACTIONS (6)
  - CONSTIPATION [None]
  - DIZZINESS [None]
  - DYSPHONIA [None]
  - FLATULENCE [None]
  - NAUSEA [None]
  - VOMITING [None]
